FAERS Safety Report 8895613 (Version 1)
Quarter: 2012Q4

REPORT INFORMATION
  Report Type: 
  Country: US (occurrence: US)
  Receive Date: 20121107
  Receipt Date: 20121107
  Transmission Date: 20130627
  Serious: Yes (Hospitalization)
  Sender: FDA-Public Use
  Company Number: US-GILEAD-2012-0062622

PATIENT
  Sex: Female

DRUGS (2)
  1. LETAIRIS [Suspect]
     Indication: COR PULMONALE CHRONIC
     Dosage: 5 mg, UNK
     Route: 048
     Dates: start: 20071107
  2. REVATIO [Concomitant]

REACTIONS (4)
  - Catheterisation cardiac [Unknown]
  - Cardiac disorder [Unknown]
  - Pulmonary arterial pressure increased [Not Recovered/Not Resolved]
  - Angina pectoris [Unknown]
